FAERS Safety Report 9156751 (Version 1)
Quarter: 2013Q1

REPORT INFORMATION
  Report Type: Spontaneous
  Country: FR (occurrence: FR)
  Receive Date: 20130312
  Receipt Date: 20130312
  Transmission Date: 20140127
  Serious: Yes (Congenital Anomaly)
  Sender: FDA-Public Use
  Company Number: FR-ELI_LILLY_AND_COMPANY-FR201302010071

PATIENT
  Sex: 0

DRUGS (2)
  1. CYMBALTA [Suspect]
     Dosage: 60 MG, QD
     Route: 064
     Dates: start: 20100501, end: 20100715
  2. CYMBALTA [Suspect]
     Dosage: 60 MG, QD
     Route: 064
     Dates: start: 20100501, end: 20100715

REACTIONS (4)
  - Ventricular septal defect [Unknown]
  - Cryptorchism [Unknown]
  - Diaphragmatic hernia [Unknown]
  - Foetal exposure during pregnancy [Unknown]
